FAERS Safety Report 5885795-2 (Version None)
Quarter: 2008Q3

REPORT INFORMATION
  Report Type: 
  Country: None (occurrence: None)
  Receive Date: 20080917
  Receipt Date: 20080911
  Transmission Date: 20090109
  Serious: Yes (Hospitalization)
  Sender: FDA-Public Use
  Company Number: JP-BAYER-200811991BYL

PATIENT
  Age: 38 Year
  Sex: Female
  Weight: 60 kg

DRUGS (5)
  1. BETAFERON [Suspect]
     Indication: MULTIPLE SCLEROSIS
     Route: 058
     Dates: start: 20080402, end: 20080826
  2. PREDNISOLONE [Concomitant]
     Route: 048
     Dates: start: 20050613
  3. VITAMEDIN [Concomitant]
     Dosage: TOTAL DAILY DOSE: 75 MG
     Route: 048
     Dates: start: 20050309
  4. TEGRETOL [Concomitant]
     Route: 048
     Dates: start: 20080206
  5. GASPORT-D [Concomitant]
     Dosage: TOTAL DAILY DOSE: 20 MG
     Route: 048
     Dates: start: 20050223

REACTIONS (3)
  - HEADACHE [None]
  - MENINGITIS ASEPTIC [None]
  - PYREXIA [None]
